FAERS Safety Report 11221172 (Version 1)
Quarter: 2015Q2

REPORT INFORMATION
  Report Type: Spontaneous
  Country: IT (occurrence: IT)
  Receive Date: 20150626
  Receipt Date: 20150626
  Transmission Date: 20150821
  Serious: Yes (Hospitalization)
  Sender: FDA-Public Use
  Company Number: IT-TEVA-572347ACC

PATIENT
  Age: 74 Year
  Sex: Female

DRUGS (6)
  1. JUMEX - 5 MG COMPRESSE [Concomitant]
     Indication: PARKINSON^S DISEASE
     Dosage: 5 MG
     Route: 048
     Dates: start: 20150604, end: 20150615
  2. LANSOX [Concomitant]
     Active Substance: LANSOPRAZOLE
     Indication: GASTROOESOPHAGEAL REFLUX DISEASE
  3. EUTIROX - 100 MICROGRAMMI COMPRESSE [Concomitant]
     Indication: HYPOTHYROIDISM
     Dosage: 100 UG
     Route: 048
  4. QUARK - 5 MG COMPRESSE [Concomitant]
     Indication: HYPERTENSION
     Dosage: 5 MG
     Route: 048
  5. CARBOLITHIUM - 300 MG CAPSULE RIGIDE - TEVA ITALIA S.R.L. [Suspect]
     Active Substance: LITHIUM CARBONATE
     Indication: BIPOLAR DISORDER
     Dosage: 600 MILLIGRAM DAILY;
     Route: 048
  6. DEPAKENE [Concomitant]
     Active Substance: VALPROIC ACID
     Indication: PRODUCT USED FOR UNKNOWN INDICATION
     Dosage: GASTRO-RESISTANT TABLET

REACTIONS (4)
  - Dehydration [Recovering/Resolving]
  - Toxicity to various agents [Recovering/Resolving]
  - Coma [Recovering/Resolving]
  - Tachycardia [Recovering/Resolving]

NARRATIVE: CASE EVENT DATE: 20150610
